FAERS Safety Report 4648697-5 (Version None)
Quarter: 2005Q2

REPORT INFORMATION
  Report Type: 
  Country: None (occurrence: None)
  Receive Date: 20050427
  Receipt Date: 20050411
  Transmission Date: 20051028
  Serious: Yes (Hospitalization)
  Sender: FDA-Public Use
  Company Number: DSA_26257_2005

PATIENT
  Age: 76 Year
  Sex: Male

DRUGS (2)
  1. TEVETEN PLUS [Suspect]
     Indication: HYPERTENSION
     Dosage: 600 MG Q DAY PO
     Route: 048
     Dates: start: 20041118
  2. DICLO 50 [Concomitant]

REACTIONS (10)
  - ANGIOPATHY [None]
  - ASTHENIA [None]
  - BRAIN STEM AUDITORY EVOKED RESPONSE ABNORMAL [None]
  - CEREBELLAR SYNDROME [None]
  - CEREBRAL ATHEROSCLEROSIS [None]
  - CEREBRAL INFARCTION [None]
  - CEREBRAL ISCHAEMIA [None]
  - HYPERTENSION [None]
  - RETINOPATHY HYPERTENSIVE [None]
  - VERTIGO [None]
